FAERS Safety Report 4598508-1 (Version None)
Quarter: 2005Q1

REPORT INFORMATION
  Report Type: 
  Country: None (occurrence: None)
  Receive Date: 20050204
  Receipt Date: 20041119
  Transmission Date: 20050727
  Serious: Yes (Hospitalization)
  Sender: FDA-Public Use
  Company Number: PHEH2004US10973

PATIENT
  Age: 18 Year
  Sex: Male

DRUGS (3)
  1. CLOZARIL [Suspect]
     Indication: SCHIZOPHRENIA
     Dosage: 700 MG, QD, ORAL; SEE IMAGE
     Route: 048
     Dates: start: 20040401
  2. PROPANOL (PROPANOLOL) [Concomitant]
  3. ABILIFY [Concomitant]

REACTIONS (1)
  - GRAND MAL CONVULSION [None]
